FAERS Safety Report 23553632 (Version 1)
Quarter: 2024Q1

REPORT INFORMATION
  Report Type: Spontaneous
  Country: US (occurrence: None)
  Receive Date: 20240221
  Receipt Date: 20240221
  Transmission Date: 20240410
  Serious: Yes (Other)
  Sender: FDA-Public Use
  Company Number: None

PATIENT
  Age: 83 Year
  Sex: Female
  Weight: 77.11 kg

DRUGS (9)
  1. ELIQUIS [Suspect]
     Active Substance: APIXABAN
     Indication: Chest pain
     Dosage: FREQUENCY : TWICE A DAY;?
     Route: 048
     Dates: start: 20230725
  2. ELIQUIS [Suspect]
     Active Substance: APIXABAN
     Indication: Atrial fibrillation
  3. LOSARTAN POTASSIUM [Concomitant]
     Active Substance: LOSARTAN POTASSIUM
  4. EZETIMIBE [Concomitant]
     Active Substance: EZETIMIBE
  5. SERTRALINE HYDROCHLORIDE [Concomitant]
     Active Substance: SERTRALINE HYDROCHLORIDE
  6. METOPROLOL SUCCINATE ER [Concomitant]
  7. ANASTROZOLE [Concomitant]
     Active Substance: ANASTROZOLE
  8. NATURE MADE VIT D3 [Concomitant]
  9. ASPIRIN [Concomitant]
     Active Substance: ASPIRIN

REACTIONS (1)
  - Alopecia [None]

NARRATIVE: CASE EVENT DATE: 20230801
